FAERS Safety Report 7481249-0 (Version None)
Quarter: 2011Q2

REPORT INFORMATION
  Report Type: 
  Country: None (occurrence: None)
  Receive Date: 20110506
  Receipt Date: 20110427
  Transmission Date: 20111010
  Serious: Yes (Hospitalization, Other)
  Sender: FDA-Public Use
  Company Number: 2010SP052983

PATIENT
  Age: 27 Year
  Sex: Female
  Weight: 81.6475 kg

DRUGS (2)
  1. SYNTHROID [Concomitant]
  2. NUVARING [Suspect]
     Indication: CONTRACEPTION
     Dosage: VAG
     Route: 067
     Dates: start: 20061201, end: 20081001

REACTIONS (23)
  - HAEMORRHAGIC DISORDER [None]
  - HAEMORRHOIDS [None]
  - MELANOCYTIC NAEVUS [None]
  - DEPRESSION [None]
  - FALL [None]
  - PAPILLOMA VIRAL INFECTION [None]
  - PHLEBITIS [None]
  - ARTHROFIBROSIS [None]
  - GASTROINTESTINAL DISORDER [None]
  - DRUG HYPERSENSITIVITY [None]
  - SKIN LESION [None]
  - PULMONARY EMBOLISM [None]
  - CARDIOVASCULAR DISORDER [None]
  - CERVICAL DYSPLASIA [None]
  - STRESS [None]
  - JOINT DISLOCATION [None]
  - LIGAMENT RUPTURE [None]
  - HAEMATOCHEZIA [None]
  - DEEP VEIN THROMBOSIS [None]
  - ANXIETY [None]
  - ANAL FISSURE [None]
  - CONSTIPATION [None]
  - JOINT INJURY [None]
